FAERS Safety Report 16773790 (Version 1)
Quarter: 2019Q3

REPORT INFORMATION
  Report Type: Spontaneous
  Country: US (occurrence: US)
  Receive Date: 20190904
  Receipt Date: 20190904
  Transmission Date: 20191005
  Serious: Yes (Other)
  Sender: FDA-Public Use
  Company Number: US-HLSUS-2018-US-000675

PATIENT
  Sex: Male

DRUGS (2)
  1. CLOZARIL [Suspect]
     Active Substance: CLOZAPINE
     Indication: SCHIZOPHRENIA
     Dosage: 600MG
     Route: 048
     Dates: start: 201709
  2. REXULTI [Suspect]
     Active Substance: BREXPIPRAZOLE
     Indication: SCHIZOPHRENIA
     Dosage: 4MG QD
     Route: 065
     Dates: start: 20180620

REACTIONS (7)
  - Asthenia [Unknown]
  - Intrusive thoughts [Unknown]
  - Adverse drug reaction [Unknown]
  - Psychotic symptom [Unknown]
  - Psychotic disorder [Unknown]
  - Depressed mood [Unknown]
  - Apathy [Unknown]
